FAERS Safety Report 20027709 (Version 7)
Quarter: 2022Q1

REPORT INFORMATION
  Report Type: Report from Study
  Country: BE (occurrence: None)
  Receive Date: 20211103
  Receipt Date: 20220224
  Transmission Date: 20220424
  Serious: Yes (Hospitalization)
  Sender: FDA-Public Use
  Company Number: BE-ROCHE-2947381

PATIENT
  Age: 47 Year
  Sex: Female
  Weight: 98 kg

DRUGS (11)
  1. TUCATINIB [Suspect]
     Active Substance: TUCATINIB
     Indication: HER2 positive breast cancer
     Dosage: RECEIVED LAST DOSE ON 24 DEC 2021
     Route: 065
     Dates: start: 20211019, end: 20211020
  2. ADO-TRASTUZUMAB EMTANSINE [Suspect]
     Active Substance: ADO-TRASTUZUMAB EMTANSINE
     Indication: HER2 positive breast cancer
     Dosage: RECEIVED LAST DOSE ON 21/DEC/2021
     Route: 042
     Dates: start: 20211019, end: 20211109
  3. DEXPANTHENOL [Concomitant]
     Active Substance: DEXPANTHENOL
     Dates: start: 2018
  4. APIXABAN [Concomitant]
     Active Substance: APIXABAN
     Dates: start: 20210928, end: 20211023
  5. INDERAL [Concomitant]
     Active Substance: PROPRANOLOL HYDROCHLORIDE
     Dates: start: 20210329
  6. LORMETAZEPAM [Concomitant]
     Active Substance: LORMETAZEPAM
     Dates: start: 20210928
  7. MAGNECAPS [Concomitant]
     Dates: start: 20210329
  8. CETIRIZINE [Concomitant]
     Active Substance: CETIRIZINE HYDROCHLORIDE
     Dates: start: 2011
  9. IMODIUM [Concomitant]
     Active Substance: LOPERAMIDE HYDROCHLORIDE
     Dates: start: 202005
  10. EXCEDRIN [Concomitant]
     Active Substance: ACETAMINOPHEN\ASPIRIN\CAFFEINE
     Dates: start: 2015
  11. ULTRA K [Concomitant]
     Dates: start: 20211024, end: 20211102

REACTIONS (5)
  - Cholecystitis [Recovered/Resolved]
  - Cholecystitis [Recovered/Resolved]
  - Colitis [Not Recovered/Not Resolved]
  - Cholangitis [Recovered/Resolved]
  - Hepatotoxicity [Recovered/Resolved]

NARRATIVE: CASE EVENT DATE: 20211024
